FAERS Safety Report 5581704-4 (Version None)
Quarter: 2008Q1

REPORT INFORMATION
  Report Type: 
  Country: None (occurrence: None)
  Receive Date: 20080104
  Receipt Date: 20071226
  Transmission Date: 20080703
  Serious: Yes (Other)
  Sender: FDA-Public Use
  Company Number: CA-JNJFOC-20071204904

PATIENT
  Sex: Female

DRUGS (1)
  1. TYLENOL COLD AND FLU NIGHTTIME [Suspect]
     Indication: DRUG USE FOR UNKNOWN INDICATION
     Route: 048

REACTIONS (3)
  - CHOKING [None]
  - ORAL ADMINISTRATION COMPLICATION [None]
  - PAIN [None]
